FAERS Safety Report 9421474 (Version 1)
Quarter: 2013Q3

REPORT INFORMATION
  Report Type: Spontaneous
  Country: US (occurrence: US)
  Receive Date: 20130726
  Receipt Date: 20130726
  Transmission Date: 20140515
  Serious: Yes (Other)
  Sender: FDA-Public Use
  Company Number: US-ROCHE-791161

PATIENT
  Age: 21 Year
  Sex: Female
  Weight: 130 kg

DRUGS (3)
  1. ACCUTANE [Suspect]
     Indication: ACNE
     Route: 065
     Dates: start: 199606, end: 19960915
  2. ACCUTANE [Suspect]
     Route: 065
  3. ACCUTANE [Suspect]
     Route: 065
     Dates: start: 20091215, end: 201005

REACTIONS (9)
  - Inflammatory bowel disease [Unknown]
  - Crohn^s disease [Unknown]
  - Depression [Unknown]
  - Colitis [Unknown]
  - Intestinal haemorrhage [Unknown]
  - Blood cholesterol increased [Unknown]
  - Gastrooesophageal reflux disease [Unknown]
  - Arthralgia [Unknown]
  - Lip dry [Unknown]
